FAERS Safety Report 6309397-9 (Version None)
Quarter: 2009Q3

REPORT INFORMATION
  Report Type: 
  Country: None (occurrence: None)
  Receive Date: 20090814
  Receipt Date: 20090804
  Transmission Date: 20100115
  Serious: Yes (Other)
  Sender: FDA-Public Use
  Company Number: US-ROCHE-648971

PATIENT
  Sex: Male
  Weight: 76.4 kg

DRUGS (9)
  1. RO 5185426 (SELECTIVE B-RAF KINASE INHIBITOR) [Suspect]
     Dosage: CYCLE 3. TOTAL DOSE  FROM MOST RECENT CYCLE: 40320 MG. TOTAL CUMULATIVE DOSE UP TO SAE: 145920 MG.
     Route: 048
     Dates: start: 20090505, end: 20090722
  2. RO 5185426 (SELECTIVE B-RAF KINASE INHIBITOR) [Suspect]
     Route: 048
     Dates: start: 20090730
  3. RO 5185426 (SELECTIVE B-RAF KINASE INHIBITOR) [Suspect]
     Route: 048
     Dates: start: 20090803
  4. AMBIEN [Concomitant]
     Indication: INSOMNIA
     Dosage: 10 MG HS.
     Dates: start: 20070815
  5. ATIVAN [Concomitant]
     Indication: INSOMNIA RELATED TO ANOTHER MENTAL CONDITION
     Dates: start: 20090119
  6. OXYCODONE [Concomitant]
     Dates: start: 20081120
  7. NEXIUM [Concomitant]
     Indication: GASTRITIS
     Dates: start: 20070815
  8. METOPROLOL [Concomitant]
     Indication: HYPERTENSION
     Dates: start: 20090413
  9. TRIAMTERENE [Concomitant]
     Indication: HYPERTENSION
     Dosage: 25/37.5 MG QD.
     Dates: start: 20090519, end: 20090723

REACTIONS (1)
  - SQUAMOUS CELL CARCINOMA OF SKIN [None]
